FAERS Safety Report 9045286 (Version 1)
Quarter: 2013Q1

REPORT INFORMATION
  Report Type: Report from Study
  Country: US (occurrence: US)
  Receive Date: 20130131
  Receipt Date: 20130131
  Transmission Date: 20140127
  Serious: No
  Sender: FDA-Public Use
  Company Number: US-ABBOTT-12P-163-0992394-00

PATIENT
  Age: 44 Year
  Sex: Male

DRUGS (2)
  1. HUMIRA [Suspect]
     Indication: CROHN^S DISEASE
     Dosage: LOADING DOSE
     Dates: start: 20120913, end: 20120913
  2. HUMIRA [Suspect]
     Dosage: LOADING DOSE
     Dates: start: 20120927

REACTIONS (8)
  - Drug ineffective [Not Recovered/Not Resolved]
  - Pain [Not Recovered/Not Resolved]
  - Rash [Not Recovered/Not Resolved]
  - Cardiovascular disorder [Unknown]
  - Neck pain [Unknown]
  - Pain [Unknown]
  - Blister [Not Recovered/Not Resolved]
  - Blister [Not Recovered/Not Resolved]
